FAERS Safety Report 25213693 (Version 1)
Quarter: 2025Q2

REPORT INFORMATION
  Report Type: Spontaneous
  Country: US (occurrence: US)
  Receive Date: 20250418
  Receipt Date: 20250418
  Transmission Date: 20250717
  Serious: Yes (Other)
  Sender: PFIZER
  Company Number: US-PFIZER INC-202500077390

PATIENT
  Age: 66 Year
  Sex: Female

DRUGS (1)
  1. DEPO-MEDROL [Suspect]
     Active Substance: METHYLPREDNISOLONE ACETATE
     Dates: start: 2010

REACTIONS (6)
  - Knee operation [Unknown]
  - Gait inability [Unknown]
  - Pain [Unknown]
  - Asthenia [Unknown]
  - Arthritis [Unknown]
  - Drug hypersensitivity [Unknown]
